FAERS Safety Report 8517326-2 (Version None)
Quarter: 2012Q3

REPORT INFORMATION
  Report Type: 
  Country: None (occurrence: None)
  Receive Date: 20120718
  Receipt Date: 20120716
  Transmission Date: 20120928
  Serious: Yes (Disabling, Other)
  Sender: FDA-Public Use
  Company Number: US-PFIZER INC-2012171213

PATIENT
  Age: 63 Year
  Sex: Male

DRUGS (1)
  1. LIPITOR [Suspect]
     Dosage: 80 MG, UNK
     Dates: end: 20120101

REACTIONS (6)
  - MYALGIA [None]
  - TENDONITIS [None]
  - MUSCLE SPASMS [None]
  - LIMB DISCOMFORT [None]
  - PAIN [None]
  - MUSCLE TIGHTNESS [None]
